FAERS Safety Report 6382420-1 (Version None)
Quarter: 2009Q3

REPORT INFORMATION
  Report Type: 
  Country: None (occurrence: None)
  Receive Date: 20090928
  Receipt Date: 20090928
  Transmission Date: 20100115
  Serious: No
  Sender: FDA-Public Use
  Company Number: None

PATIENT
  Age: 89 Year
  Sex: Male
  Weight: 75 kg

DRUGS (2)
  1. MORPHINE [Suspect]
     Dosage: 30 MG BID PO
     Route: 048
     Dates: start: 20081128, end: 20081201
  2. MORPHINE [Suspect]
     Dosage: 15 MG OTHER
     Route: 048
     Dates: start: 20081128, end: 20081201

REACTIONS (2)
  - HYPOTENSION [None]
  - LETHARGY [None]
